FAERS Safety Report 8226972-5 (Version None)
Quarter: 2012Q1

REPORT INFORMATION
  Report Type: 
  Country: None (occurrence: None)
  Receive Date: 20120322
  Receipt Date: 20120314
  Transmission Date: 20120608
  Serious: Yes (Hospitalization)
  Sender: FDA-Public Use
  Company Number: CA-JNJFOC-20120308071

PATIENT
  Sex: Female

DRUGS (2)
  1. SIMPONI [Suspect]
     Route: 058
     Dates: start: 20111008
  2. SIMPONI [Suspect]
     Indication: RHEUMATOID ARTHRITIS
     Route: 058
     Dates: start: 20120109

REACTIONS (1)
  - PNEUMONIA [None]
